FAERS Safety Report 23748664 (Version 1)
Quarter: 2024Q2

REPORT INFORMATION
  Report Type: Report from Study
  Country: US (occurrence: None)
  Receive Date: 20240416
  Receipt Date: 20240416
  Transmission Date: 20240716
  Serious: Yes (Hospitalization)
  Sender: FDA-Public Use
  Company Number: 2024A087136

PATIENT
  Sex: Male

DRUGS (17)
  1. LYNPARZA [Suspect]
     Active Substance: OLAPARIB
     Indication: Prostate cancer
     Route: 048
     Dates: start: 20240125
  2. LYNPARZA [Suspect]
     Active Substance: OLAPARIB
     Indication: Metastases to bone
     Route: 048
     Dates: start: 20240125
  3. PREDNISOLONE [Concomitant]
     Active Substance: PREDNISOLONE
  4. PERCOCET [Concomitant]
     Active Substance: ACETAMINOPHEN\OXYCODONE HYDROCHLORIDE
  5. MIRTAZAPINE [Concomitant]
     Active Substance: MIRTAZAPINE
  6. IMODIUM [Concomitant]
     Active Substance: LOPERAMIDE HYDROCHLORIDE
  7. ZOLPIDEM [Concomitant]
     Active Substance: ZOLPIDEM TARTRATE
  8. FOLIC ACID [Concomitant]
     Active Substance: FOLIC ACID
  9. ZYTIGA [Concomitant]
     Active Substance: ABIRATERONE ACETATE
  10. ONDANSETRON [Concomitant]
     Active Substance: ONDANSETRON
  11. COMPAZINE [Concomitant]
     Active Substance: PROCHLORPERAZINE MALEATE
  12. FENTANYL [Concomitant]
     Active Substance: FENTANYL\FENTANYL CITRATE
  13. LUPRON [Concomitant]
     Active Substance: LEUPROLIDE ACETATE
  14. TAMSULOSIN [Concomitant]
     Active Substance: TAMSULOSIN
  15. MELOXICAM [Concomitant]
     Active Substance: MELOXICAM
  16. NITROGLYCERIN [Concomitant]
     Active Substance: NITROGLYCERIN
  17. CALCIUM\CHOLECALCIFEROL [Concomitant]
     Active Substance: CALCIUM\CHOLECALCIFEROL

REACTIONS (5)
  - Haemorrhage [Not Recovered/Not Resolved]
  - Haemorrhoids [Not Recovered/Not Resolved]
  - Ageusia [Not Recovered/Not Resolved]
  - Upper limb fracture [Not Recovered/Not Resolved]
  - Osteoporosis [Not Recovered/Not Resolved]
